FAERS Safety Report 8832860 (Version 3)
Quarter: 2012Q4

REPORT INFORMATION
  Report Type: 
  Country: NO (occurrence: NO)
  Receive Date: 20121009
  Receipt Date: 20121217
  Transmission Date: 20130627
  Serious: Yes (Other)
  Sender: FDA-Public Use
  Company Number: NO-AMGEN-NORSP2012063302

PATIENT
  Age: 72 Year
  Sex: Male

DRUGS (7)
  1. XGEVA [Suspect]
     Indication: PROSTATE CANCER METASTATIC
     Dosage: 120 mg, q4wk
     Route: 058
     Dates: start: 20111024, end: 20111121
  2. XGEVA [Suspect]
     Indication: METASTASES TO BONE
  3. PREDNISOLONE [Concomitant]
     Indication: PROSTATE CANCER
     Dosage: 5 mg, bid
     Route: 048
  4. MEDROL                             /00049601/ [Concomitant]
     Indication: PROSTATE CANCER
     Route: 048
  5. ZOLADEX                            /00732101/ [Concomitant]
     Indication: PROSTATE CANCER
     Dosage: 10.8 DF, UNK
     Route: 058
  6. CALCIGRAN FORTE [Concomitant]
     Indication: CONNECTIVE TISSUE DISORDER
  7. DOCETAXEL [Concomitant]

REACTIONS (5)
  - Abscess jaw [Unknown]
  - Tooth abscess [Unknown]
  - Periodontitis [Unknown]
  - Loose tooth [Recovered/Resolved]
  - Osteonecrosis of jaw [Recovered/Resolved]
